FAERS Safety Report 5922838-1 (Version None)
Quarter: 2008Q4

REPORT INFORMATION
  Report Type: 
  Country: None (occurrence: None)
  Receive Date: 20081017
  Receipt Date: 20081010
  Transmission Date: 20090506
  Serious: Yes (Other)
  Sender: FDA-Public Use
  Company Number: PHHY2008DE16580

PATIENT
  Sex: Female

DRUGS (3)
  1. RASILEZ [Suspect]
     Indication: HYPERTENSION
     Dosage: 150 MG DAILY
     Dates: start: 20080718, end: 20080720
  2. RASILEZ [Suspect]
     Dosage: UNK
     Dates: start: 20080101
  3. ANTIHYPERTENSIVES [Concomitant]

REACTIONS (2)
  - PALPITATIONS [None]
  - SINUS TACHYCARDIA [None]
